FAERS Safety Report 11750093 (Version 1)
Quarter: 2015Q4

REPORT INFORMATION
  Report Type: Report from Study
  Country: US (occurrence: US)
  Receive Date: 20151118
  Receipt Date: 20151118
  Transmission Date: 20160304
  Serious: Yes (Hospitalization)
  Sender: FDA-Public Use
  Company Number: US-BIOGENIDEC-2015BI144786

PATIENT
  Sex: Female

DRUGS (15)
  1. FLURICASONE PROPIONATE [Concomitant]
  2. VITAMIN D [Concomitant]
     Active Substance: CHOLECALCIFEROL
  3. TECFIDERA [Suspect]
     Active Substance: DIMETHYL FUMARATE
     Indication: MULTIPLE SCLEROSIS
     Route: 048
     Dates: start: 201309
  4. METOPROLOL TARTRATE. [Concomitant]
     Active Substance: METOPROLOL TARTRATE
  5. AMANTADINE HCL [Concomitant]
     Active Substance: AMANTADINE HYDROCHLORIDE
  6. JANUMET [Concomitant]
     Active Substance: METFORMIN HYDROCHLORIDE\SITAGLIPTIN PHOSPHATE
  7. MITOSOL [Concomitant]
     Active Substance: ISOPROPYL ALCOHOL\MITOMYCIN
  8. LANSOPRAZOLE. [Concomitant]
     Active Substance: LANSOPRAZOLE
  9. INDOMETHACIN. [Concomitant]
     Active Substance: INDOMETHACIN
  10. HYDROCODONE [Concomitant]
     Active Substance: HYDROCODONE
  11. FENOFIBRATE. [Concomitant]
     Active Substance: FENOFIBRATE
  12. LISINOPRIL. [Concomitant]
     Active Substance: LISINOPRIL
  13. TECFIDERA [Suspect]
     Active Substance: DIMETHYL FUMARATE
     Indication: MULTIPLE SCLEROSIS
     Route: 048
  14. MIRTAZAPINE. [Concomitant]
     Active Substance: MIRTAZAPINE
  15. LOLLIBASE [Concomitant]

REACTIONS (1)
  - Blood glucose increased [Unknown]
